FAERS Safety Report 14657089 (Version 1)
Quarter: 2018Q1

REPORT INFORMATION
  Report Type: Spontaneous
  Country: US (occurrence: US)
  Receive Date: 20180319
  Receipt Date: 20180319
  Transmission Date: 20180509
  Serious: Yes (Hospitalization)
  Sender: FDA-Public Use
  Company Number: US-ACTELION-A-NJ2018-169101

PATIENT
  Age: 7 Year
  Sex: Female

DRUGS (2)
  1. ZAVESCA [Suspect]
     Active Substance: MIGLUSTAT
     Indication: FABRY^S DISEASE
     Dosage: 100 MG, BID
     Route: 048
     Dates: start: 20171018
  2. ZAVESCA [Suspect]
     Active Substance: MIGLUSTAT
     Indication: GAUCHER^S DISEASE

REACTIONS (2)
  - Haemorrhage [Unknown]
  - Atypical pneumonia [Unknown]
